FAERS Safety Report 5288641-3 (Version None)
Quarter: 2007Q2

REPORT INFORMATION
  Report Type: 
  Country: None (occurrence: None)
  Receive Date: 20070405
  Receipt Date: 20070330
  Transmission Date: 20071010
  Serious: Yes (Hospitalization)
  Sender: FDA-Public Use
  Company Number: 2006UW21202

PATIENT
  Age: 471 Month
  Sex: Male
  Weight: 104.5 kg

DRUGS (2)
  1. SEROQUEL [Suspect]
     Indication: DEPRESSION
     Route: 048
     Dates: start: 20050701, end: 20051101
  2. ABILIFY [Concomitant]
     Dates: start: 20060701

REACTIONS (3)
  - DIABETES MELLITUS [None]
  - INJURY [None]
  - LUNG DISORDER [None]
